FAERS Safety Report 9941345 (Version 2)
Quarter: 2014Q1

REPORT INFORMATION
  Report Type: Report from Study
  Country: US (occurrence: US)
  Receive Date: 20140303
  Receipt Date: 20140303
  Transmission Date: 20141002
  Serious: No
  Sender: FDA-Public Use
  Company Number: US-ABBVIE-12P-163-1028610-00

PATIENT
  Age: 58 Year
  Sex: Female

DRUGS (23)
  1. HUMIRA [Suspect]
     Indication: CROHN^S DISEASE
     Dates: start: 20121114, end: 20121114
  2. HUMIRA [Suspect]
     Dates: start: 20121128, end: 20121128
  3. HUMIRA [Suspect]
     Dates: start: 20121212, end: 20121212
  4. ZOFRAN [Concomitant]
     Indication: PRODUCT USED FOR UNKNOWN INDICATION
  5. JINTELI [Concomitant]
     Indication: HOT FLUSH
     Dosage: 1 MG DAILY
  6. SYNTHROID [Concomitant]
     Indication: PRODUCT USED FOR UNKNOWN INDICATION
     Dosage: 25 MCG DAILY
  7. ASA [Concomitant]
     Indication: PRODUCT USED FOR UNKNOWN INDICATION
     Dosage: 81 MG DAILY
  8. TRAZODONE [Concomitant]
     Indication: INSOMNIA
     Dosage: 100 MG DAILY
  9. ZANAFLEX [Concomitant]
     Indication: MUSCLE RELAXANT THERAPY
     Dosage: 1 MCG AND 6 MCG AT BEDTIME
  10. KLONOPIN [Concomitant]
     Indication: FEELING OF RELAXATION
     Dosage: 0.5 MG IN AFTERNOON, 1 MG AT BEDTIME
  11. ELMIRON [Concomitant]
     Indication: URINARY TRACT DISORDER
  12. SAVELLA [Concomitant]
     Indication: FIBROMYALGIA
  13. ASACOL [Concomitant]
     Indication: COLITIS
  14. MAGNESIUM [Concomitant]
     Indication: PRODUCT USED FOR UNKNOWN INDICATION
  15. B-12 [Concomitant]
     Indication: PRODUCT USED FOR UNKNOWN INDICATION
     Route: 060
  16. B-12 [Concomitant]
     Dosage: 1000 IU DAILY
  17. FENTANYL [Concomitant]
     Indication: PRODUCT USED FOR UNKNOWN INDICATION
  18. FENTANYL [Concomitant]
     Dosage: 1000 IU DAILY
  19. ENDOCET [Concomitant]
     Indication: TORTICOLLIS
     Dosage: 10-325 MG
  20. ENDOCET [Concomitant]
     Dosage: 1000 IU DAILY
  21. DYSPORT [Concomitant]
     Indication: MUSCLE TIGHTNESS
     Route: 050
  22. DYSPORT [Concomitant]
     Dosage: 1000 IU DAILY
  23. UNKNOWN MEDICATION [Concomitant]
     Indication: URINARY INCONTINENCE

REACTIONS (8)
  - Dizziness [Unknown]
  - Rash [Not Recovered/Not Resolved]
  - Rash [Unknown]
  - Headache [Unknown]
  - Fatigue [Unknown]
  - Chills [Unknown]
  - Arthralgia [Unknown]
  - Urinary tract infection [Unknown]
